FAERS Safety Report 12633929 (Version 1)
Quarter: 2016Q3

REPORT INFORMATION
  Report Type: Spontaneous
  Country: US (occurrence: None)
  Receive Date: 20160808
  Receipt Date: 20160808
  Transmission Date: 20161109
  Serious: No
  Sender: FDA-Public Use
  Company Number: None

PATIENT
  Age: 58 Year
  Sex: Male
  Weight: 77.11 kg

DRUGS (2)
  1. CELECOXIB. [Suspect]
     Active Substance: CELECOXIB
     Indication: NECK PAIN
     Route: 048
     Dates: start: 20160714
  2. CELECOXIB. [Suspect]
     Active Substance: CELECOXIB
     Indication: ARTHRALGIA
     Route: 048
     Dates: start: 20160714

REACTIONS (8)
  - Food interaction [None]
  - Hypersensitivity [None]
  - Wheezing [None]
  - Eye swelling [None]
  - Throat tightness [None]
  - Swelling face [None]
  - Cough [None]
  - Dyspnoea [None]

NARRATIVE: CASE EVENT DATE: 20160720
